FAERS Safety Report 9160969 (Version 3)
Quarter: 2014Q2

REPORT INFORMATION
  Report Type: Report from Study
  Country: US (occurrence: US)
  Receive Date: 20130313
  Receipt Date: 20140630
  Transmission Date: 20141212
  Serious: Yes (Hospitalization, Other)
  Sender: FDA-Public Use
  Company Number: US-ALEXION-A201300414

PATIENT
  Sex: 0

DRUGS (1)
  1. SOLIRIS [Suspect]
     Indication: PAROXYSMAL NOCTURNAL HAEMOGLOBINURIA
     Dosage: UNK
     Route: 042

REACTIONS (10)
  - Pneumonia [Unknown]
  - Haemolysis [Unknown]
  - Transfusion [Unknown]
  - Haemoglobinuria [Unknown]
  - Jaundice [Unknown]
  - Erectile dysfunction [Unknown]
  - Dysphagia [Unknown]
  - Chromaturia [Unknown]
  - Malaise [Unknown]
  - Fatigue [Unknown]
